FAERS Safety Report 23773524 (Version 1)
Quarter: 2024Q2

REPORT INFORMATION
  Report Type: Spontaneous
  Country: US (occurrence: US)
  Receive Date: 20240423
  Receipt Date: 20240423
  Transmission Date: 20240716
  Serious: No
  Sender: FDA-Public Use
  Company Number: US-HALEON-2170084

PATIENT

DRUGS (1)
  1. PREPARATION H SOOTHING RELIEF COOLING [Suspect]
     Active Substance: WITCH HAZEL
     Indication: Product used for unknown indication
     Dosage: EXPDATE:202402

REACTIONS (2)
  - Expired product administered [Unknown]
  - Wrong technique in product usage process [Unknown]
